FAERS Safety Report 6680444-8 (Version None)
Quarter: 2010Q2

REPORT INFORMATION
  Report Type: 
  Country: None (occurrence: None)
  Receive Date: 20100414
  Receipt Date: 20100408
  Transmission Date: 20101027
  Serious: Yes (Hospitalization)
  Sender: FDA-Public Use
  Company Number: US-BIOGENIDEC-2008BI012107

PATIENT
  Age: 59 Year
  Sex: Female
  Weight: 62 kg

DRUGS (2)
  1. AVONEX [Suspect]
     Indication: MULTIPLE SCLEROSIS
     Route: 030
     Dates: start: 20071120
  2. POTASSIUM MEDICATION [Concomitant]

REACTIONS (5)
  - CARDIAC ARREST [None]
  - MYOCARDIAL INFARCTION [None]
  - OVERDOSE [None]
  - SPINAL DECOMPRESSION [None]
  - SPINAL OPERATION [None]
